FAERS Safety Report 5339319-9 (Version None)
Quarter: 2007Q2

REPORT INFORMATION
  Report Type: 
  Country: None (occurrence: None)
  Receive Date: 20070525
  Receipt Date: 20070518
  Transmission Date: 20071010
  Serious: Yes (Disabling)
  Sender: FDA-Public Use
  Company Number: OSCN-NO-0705S-0215

PATIENT
  Age: 51 Year
  Sex: Male

DRUGS (1)
  1. OMNISCAN [Suspect]
     Indication: RENAL TRANSPLANT
     Dosage: 15 ML, I.V.
     Route: 042
     Dates: start: 20000101, end: 20000101

REACTIONS (5)
  - ERYTHEMA [None]
  - GAIT DISTURBANCE [None]
  - HYPOTONIA [None]
  - MUSCLE DISORDER [None]
  - PRURITUS [None]
